FAERS Safety Report 20604403 (Version 5)
Quarter: 2022Q2

REPORT INFORMATION
  Report Type: Report from Study
  Country: HU (occurrence: HU)
  Receive Date: 20220316
  Receipt Date: 20220401
  Transmission Date: 20220721
  Serious: Yes (Death, Hospitalization, Other)
  Sender: FDA-Public Use
  Company Number: HU-NOVARTISPH-NVSC2022HU059399

PATIENT
  Sex: Female
  Weight: 101 kg

DRUGS (26)
  1. ENTRESTO [Suspect]
     Active Substance: SACUBITRIL\VALSARTAN
     Indication: Product used for unknown indication
     Dosage: UNK, 49 MG/51 MG
     Route: 065
     Dates: start: 20210907
  2. PANTOPRAZOLE [Suspect]
     Active Substance: PANTOPRAZOLE
     Indication: Product used for unknown indication
     Dosage: UNK
     Route: 065
  3. BISOPROLOL [Suspect]
     Active Substance: BISOPROLOL
     Indication: Product used for unknown indication
     Dosage: UNK  IN THE MORNING 10, IN THE EVENING 5 MG (DEPENDING ON PULSE)
     Route: 065
  4. MAGNESIUM [Suspect]
     Active Substance: MAGNESIUM
     Indication: Product used for unknown indication
     Dosage: UNK UNK, QD, (EVERY DAY)
     Route: 065
  5. MERAMYL [Concomitant]
     Indication: Product used for unknown indication
     Dosage: 2.5 MG
     Route: 065
  6. ADEXOR [Concomitant]
     Indication: Product used for unknown indication
     Dosage: 1 DOSAGE FORM, BID (2X)
     Route: 065
  7. DIGOXIN [Concomitant]
     Active Substance: DIGOXIN
     Indication: Product used for unknown indication
     Dosage: 250 MCG 5 DAYS 1 TABLET DAILY THEN HALF DAILY
     Route: 065
  8. SPIRONOLACTONE [Concomitant]
     Active Substance: SPIRONOLACTONE
     Indication: Product used for unknown indication
     Dosage: 0.5 DOSAGE FORM, 25
     Route: 065
  9. ALLOPURINOL [Concomitant]
     Active Substance: ALLOPURINOL
     Indication: Product used for unknown indication
     Dosage: UNK, 300
     Route: 065
  10. FUROSEMIDE [Concomitant]
     Active Substance: FUROSEMIDE
     Indication: Product used for unknown indication
     Dosage: UNK, 3, EVERY OTHER DAY
     Route: 065
  11. FUROSEMIDE [Concomitant]
     Active Substance: FUROSEMIDE
     Dosage: 2 DOSAGE FORM
     Route: 065
  12. POTASSIUM [Concomitant]
     Active Substance: POTASSIUM
     Indication: Product used for unknown indication
     Dosage: UNK
     Route: 065
  13. EDOXABAN TOSYLATE [Concomitant]
     Active Substance: EDOXABAN TOSYLATE
     Indication: Product used for unknown indication
     Dosage: UNK, 60
     Route: 065
  14. SYNJARDY [Concomitant]
     Active Substance: EMPAGLIFLOZIN\METFORMIN HYDROCHLORIDE
     Indication: Product used for unknown indication
     Dosage: UNK, 12 M, BID
     Route: 065
  15. SYNJARDY [Concomitant]
     Active Substance: EMPAGLIFLOZIN\METFORMIN HYDROCHLORIDE
     Dosage: UNK, 5/1000
     Route: 065
  16. INSULIN NOS [Concomitant]
     Active Substance: INSULIN NOS
     Indication: Product used for unknown indication
     Dosage: UNK
     Route: 065
     Dates: start: 200902
  17. INSULIN HUMAN [Concomitant]
     Active Substance: INSULIN HUMAN
     Indication: Product used for unknown indication
     Dosage: UNK, 16-6-18 IU
     Route: 058
  18. INSULIN HUMAN [Concomitant]
     Active Substance: INSULIN HUMAN
     Indication: Product used for unknown indication
     Dosage: UNK, 10-12 IU, AT 10. P.M. AT NIGHT
     Route: 065
  19. ROCEPHIN [Concomitant]
     Active Substance: CEFTRIAXONE SODIUM
     Indication: Product used for unknown indication
     Dosage: UNK
     Route: 065
  20. FAMOTIDINE [Concomitant]
     Active Substance: FAMOTIDINE
     Indication: Product used for unknown indication
     Dosage: UNK
     Route: 065
  21. TIAPRIDE HYDROCHLORIDE [Concomitant]
     Active Substance: TIAPRIDE HYDROCHLORIDE
     Indication: Product used for unknown indication
     Dosage: UNK
     Route: 065
  22. RIVOTRIL [Concomitant]
     Active Substance: CLONAZEPAM
     Indication: Product used for unknown indication
     Dosage: UNK
     Route: 065
  23. FUROSEMIDE [Concomitant]
     Active Substance: FUROSEMIDE
     Indication: Product used for unknown indication
     Dosage: UNK
     Route: 065
  24. SOLU-MEDROL [Concomitant]
     Active Substance: METHYLPREDNISOLONE SODIUM SUCCINATE
     Indication: Product used for unknown indication
     Dosage: UNK
     Route: 065
  25. MAGNESIUM SULFATE [Concomitant]
     Active Substance: MAGNESIUM SULFATE
     Indication: Product used for unknown indication
     Dosage: UNK
     Route: 065
  26. SYNCUMAR [Concomitant]
     Active Substance: ACENOCOUMAROL
     Indication: Product used for unknown indication
     Dosage: UNK
     Route: 065

REACTIONS (72)
  - Coronavirus infection [Fatal]
  - Fatigue [Fatal]
  - Pyrexia [Fatal]
  - Peripheral swelling [Unknown]
  - Deep vein thrombosis [Unknown]
  - Cor pulmonale [Unknown]
  - Carbohydrate metabolism disorder [Unknown]
  - Cardiac failure [Unknown]
  - Metabolic disorder [Unknown]
  - Dyspnoea [Unknown]
  - Hypoaesthesia [Recovering/Resolving]
  - Chest discomfort [Unknown]
  - Blood pressure fluctuation [Unknown]
  - Dizziness [Unknown]
  - Pain in extremity [Recovering/Resolving]
  - Blood glucose fluctuation [Unknown]
  - Cardiac failure congestive [Unknown]
  - Cardiomyopathy [Unknown]
  - Atrial fibrillation [Unknown]
  - Diabetic neuropathy [Unknown]
  - Arrhythmia [Unknown]
  - Electrocardiogram QRS complex prolonged [Unknown]
  - Pneumonia [Unknown]
  - Congestive cardiomyopathy [Unknown]
  - Multiple organ dysfunction syndrome [Unknown]
  - Polyneuropathy [Unknown]
  - Confusional state [Recovering/Resolving]
  - Altered state of consciousness [Recovering/Resolving]
  - Blood pressure decreased [Unknown]
  - Agitation [Recovering/Resolving]
  - Hypertension [Unknown]
  - Lactic acidosis [Unknown]
  - Hypoxia [Unknown]
  - Ventricular hypokinesia [Unknown]
  - Respiratory failure [Unknown]
  - Diabetes mellitus [Unknown]
  - Atrial flutter [Unknown]
  - Hyperlipidaemia [Unknown]
  - Glycosylated haemoglobin increased [Unknown]
  - Cardiac murmur [Unknown]
  - Spinal pain [Unknown]
  - Back pain [Unknown]
  - Osteoarthritis [Unknown]
  - Chronic obstructive pulmonary disease [Unknown]
  - Sleep apnoea syndrome [Unknown]
  - Tooth disorder [Unknown]
  - Spondylolisthesis [Unknown]
  - Somnolence [Unknown]
  - Decreased appetite [Unknown]
  - Nausea [Unknown]
  - Overweight [Unknown]
  - Oxygen saturation decreased [Unknown]
  - Bronchospasm [Unknown]
  - Wheezing [Unknown]
  - Tinnitus [Unknown]
  - Hyperglycaemia [Unknown]
  - Neutrophil count increased [Unknown]
  - Lymphocyte count decreased [Unknown]
  - Mean cell volume increased [Unknown]
  - Red cell distribution width increased [Unknown]
  - Platelet count decreased [Unknown]
  - Mean platelet volume increased [Unknown]
  - Fibrin D dimer increased [Unknown]
  - Blood sodium decreased [Recovered/Resolved]
  - Blood glucose abnormal [Not Recovered/Not Resolved]
  - Blood creatinine increased [Recovering/Resolving]
  - Blood bilirubin increased [Unknown]
  - Bilirubin conjugated increased [Unknown]
  - Blood alkaline phosphatase [Unknown]
  - Aspartate aminotransferase increased [Unknown]
  - Blood lactate dehydrogenase increased [Unknown]
  - Investigation abnormal [Unknown]

NARRATIVE: CASE EVENT DATE: 20050101
